FAERS Safety Report 24610285 (Version 3)
Quarter: 2024Q4

REPORT INFORMATION
  Report Type: Spontaneous
  Country: US (occurrence: US)
  Receive Date: 20241112
  Receipt Date: 20241122
  Transmission Date: 20250115
  Serious: Yes (Other)
  Sender: IPSEN BIOPHARMACEUTICALS, INC.
  Company Number: US-IPSEN Group, Research and Development-2024-22138

PATIENT
  Age: 25 Year
  Sex: Male
  Weight: 86.18 kg

DRUGS (7)
  1. TAZVERIK [Suspect]
     Active Substance: TAZEMETOSTAT HYDROBROMIDE
     Indication: Soft tissue sarcoma
     Dosage: FREQUENCY: TWICE DAILY
     Route: 048
     Dates: start: 20241022
  2. NORCO [Concomitant]
     Active Substance: ACETAMINOPHEN\HYDROCODONE BITARTRATE
  3. REMERON [Concomitant]
     Active Substance: MIRTAZAPINE
  4. ONDANSETRON [Concomitant]
     Active Substance: ONDANSETRON
  5. FENTANYL [Concomitant]
     Active Substance: FENTANYL
  6. AZITHROMYCIN [Concomitant]
     Active Substance: AZITHROMYCIN
  7. ALBUTEROL [Concomitant]
     Active Substance: ALBUTEROL

REACTIONS (4)
  - Pneumonia [Recovering/Resolving]
  - Nausea [Recovering/Resolving]
  - Tumour pain [Recovering/Resolving]
  - Haemorrhage [Recovering/Resolving]
